FAERS Safety Report 25140130 (Version 2)
Quarter: 2025Q2

REPORT INFORMATION
  Report Type: Spontaneous
  Country: GB (occurrence: GB)
  Receive Date: 20250331
  Receipt Date: 20250422
  Transmission Date: 20250717
  Serious: Yes (Hospitalization, Other)
  Sender: MYLAN
  Company Number: GB-BRISTOL-MYERS SQUIBB COMPANY-2025-042726

PATIENT
  Age: 62 Year
  Sex: Male

DRUGS (20)
  1. APIXABAN [Suspect]
     Active Substance: APIXABAN
     Indication: Product used for unknown indication
  2. APIXABAN [Suspect]
     Active Substance: APIXABAN
     Route: 065
  3. APIXABAN [Suspect]
     Active Substance: APIXABAN
     Route: 065
  4. APIXABAN [Suspect]
     Active Substance: APIXABAN
  5. AVELUMAB [Suspect]
     Active Substance: AVELUMAB
     Indication: Bladder cancer stage IV
  6. AVELUMAB [Suspect]
     Active Substance: AVELUMAB
     Route: 065
  7. AVELUMAB [Suspect]
     Active Substance: AVELUMAB
     Route: 065
  8. AVELUMAB [Suspect]
     Active Substance: AVELUMAB
  9. CISPLATIN [Suspect]
     Active Substance: CISPLATIN
     Indication: Bladder cancer stage IV
     Dates: start: 20230720, end: 20231130
  10. CISPLATIN [Suspect]
     Active Substance: CISPLATIN
     Route: 065
     Dates: start: 20230720, end: 20231130
  11. CISPLATIN [Suspect]
     Active Substance: CISPLATIN
     Route: 065
     Dates: start: 20230720, end: 20231130
  12. CISPLATIN [Suspect]
     Active Substance: CISPLATIN
     Dates: start: 20230720, end: 20231130
  13. GEMCITABINE [Suspect]
     Active Substance: GEMCITABINE
     Indication: Bladder cancer stage IV
     Dates: start: 20230720, end: 20231207
  14. GEMCITABINE [Suspect]
     Active Substance: GEMCITABINE
     Route: 065
     Dates: start: 20230720, end: 20231207
  15. GEMCITABINE [Suspect]
     Active Substance: GEMCITABINE
     Route: 065
     Dates: start: 20230720, end: 20231207
  16. GEMCITABINE [Suspect]
     Active Substance: GEMCITABINE
     Dates: start: 20230720, end: 20231207
  17. DOXYCYCLINE [Concomitant]
     Active Substance: DOXYCYCLINE
     Indication: Product used for unknown indication
  18. DOXYCYCLINE [Concomitant]
     Active Substance: DOXYCYCLINE
     Route: 065
  19. DOXYCYCLINE [Concomitant]
     Active Substance: DOXYCYCLINE
     Route: 065
  20. DOXYCYCLINE [Concomitant]
     Active Substance: DOXYCYCLINE

REACTIONS (4)
  - Anaemia [Unknown]
  - Haematuria [Recovered/Resolved]
  - Crepitations [Unknown]
  - Transfusion-related circulatory overload [Unknown]

NARRATIVE: CASE EVENT DATE: 20250211
